FAERS Safety Report 4783075-X (Version None)
Quarter: 2005Q3

REPORT INFORMATION
  Report Type: 
  Country: None (occurrence: None)
  Receive Date: 20050914
  Receipt Date: 20050103
  Transmission Date: 20060218
  Serious: Yes (Other)
  Sender: FDA-Public Use
  Company Number: 2002-04-0187

PATIENT
  Age: 80 Year
  Sex: Male
  Weight: 56.2 kg

DRUGS (4)
  1. THALOMID (THALIDOMIDE) (CAPSULES) [Suspect]
     Indication: PROSTATE CANCER
     Dosage: 100-200 MG, DAILY, ORAL
     Route: 048
     Dates: start: 20020317, end: 20020415
  2. DOCETAXEL (DOCETAXEL) (INJECTION) [Suspect]
     Indication: PROSTATE CANCER
     Dosage: 30 MG/M2, ONCE PER WEEK FOR 3W, Q4W, INTRAVENOUS
     Route: 042
  3. DEXAMETHASONE [Suspect]
     Indication: PROSTATE CANCER
     Dosage: 8 MG, 12 AND 1H BEFORE DOCETAXEL AND 12H AFTER, ORAL
     Route: 048
  4. ENOXAPARIN SODIUM [Concomitant]

REACTIONS (4)
  - CEREBROVASCULAR ACCIDENT [None]
  - CYANOSIS [None]
  - DISEASE PROGRESSION [None]
  - FATIGUE [None]
